FAERS Safety Report 5105199-X (Version None)
Quarter: 2006Q3

REPORT INFORMATION
  Report Type: 
  Country: None (occurrence: None)
  Receive Date: 20060911
  Receipt Date: 20060829
  Transmission Date: 20061208
  Serious: Yes (Disabling)
  Sender: FDA-Public Use
  Company Number: 2006106206

PATIENT
  Sex: Female

DRUGS (7)
  1. GABAPENTIN [Suspect]
     Indication: NEUROPATHY PERIPHERAL
     Dosage: 1900 MG
     Dates: start: 20050701
  2. LYRICA [Suspect]
     Indication: NEUROPATHY PERIPHERAL
     Dosage: 300 MG
     Dates: start: 20060501
  3. COPAXONE [Concomitant]
  4. BACLOFEN [Concomitant]
  5. MAGNESIUM [Concomitant]
  6. OXYBUTYNIN [Concomitant]
  7. ULTRACET [Concomitant]

REACTIONS (4)
  - ABASIA [None]
  - DRUG INEFFECTIVE [None]
  - GASTROOESOPHAGEAL REFLUX DISEASE [None]
  - PAIN IN EXTREMITY [None]
